FAERS Safety Report 10039314 (Version 1)
Quarter: 2014Q1

REPORT INFORMATION
  Report Type: Spontaneous
  Country: PL (occurrence: PL)
  Receive Date: 20140326
  Receipt Date: 20140326
  Transmission Date: 20141002
  Serious: Yes (Other)
  Sender: FDA-Public Use
  Company Number: PHHY2014PL033204

PATIENT
  Age: 62 Year
  Sex: Female

DRUGS (3)
  1. TRIAMCINOLONE [Suspect]
     Indication: INTERVERTEBRAL DISC DEGENERATION
     Dosage: 80 MG, UNK
     Route: 008
  2. MEDROL [Suspect]
     Indication: INTERVERTEBRAL DISC DEGENERATION
     Dosage: 84 MG, UNK
  3. ALENDRONATE [Concomitant]
     Indication: OSTEOPOROSIS

REACTIONS (15)
  - Anaemia [Recovering/Resolving]
  - Herpes oesophagitis [Recovering/Resolving]
  - Dysphagia [Recovering/Resolving]
  - Oropharyngeal pain [Recovering/Resolving]
  - Night sweats [Recovering/Resolving]
  - Pyrexia [Recovered/Resolved]
  - Pain [Recovering/Resolving]
  - Local swelling [Recovering/Resolving]
  - Musculoskeletal discomfort [Recovering/Resolving]
  - Odynophagia [Recovering/Resolving]
  - Oesophagitis ulcerative [Recovering/Resolving]
  - Oesophagitis haemorrhagic [Recovering/Resolving]
  - Necrotising oesophagitis [Recovering/Resolving]
  - Leukocytosis [Recovering/Resolving]
  - Back pain [Recovering/Resolving]
